FAERS Safety Report 13967267 (Version 2)
Quarter: 2017Q3

REPORT INFORMATION
  Report Type: Report from Study
  Country: CN (occurrence: CN)
  Receive Date: 20170914
  Receipt Date: 20170921
  Transmission Date: 20171128
  Serious: Yes (Death, Other)
  Sender: FDA-Public Use
  Company Number: CN-ROCHE-1655623

PATIENT
  Age: 43 Year
  Sex: Male
  Weight: 77 kg

DRUGS (2)
  1. ADEFOVIR DIPIVOXIL. [Concomitant]
     Active Substance: ADEFOVIR DIPIVOXIL
     Indication: HEPATITIS B
     Route: 048
     Dates: start: 20141125
  2. PEG-INTERFERON ALFA 2A [Suspect]
     Active Substance: PEGINTERFERON ALFA-2A
     Indication: CHRONIC HEPATITIS B
     Route: 058
     Dates: start: 20150102, end: 20160415

REACTIONS (2)
  - Death [Fatal]
  - Bone marrow failure [Recovered/Resolved]

NARRATIVE: CASE EVENT DATE: 20150811
